FAERS Safety Report 19401134 (Version 1)
Quarter: 2021Q2

REPORT INFORMATION
  Report Type: Spontaneous
  Country: US (occurrence: US)
  Receive Date: 20210610
  Receipt Date: 20210610
  Transmission Date: 20210717
  Serious: No
  Sender: FDA-Public Use
  Company Number: US-PFIZER INC-2021314280

PATIENT
  Age: 74 Year
  Sex: Female
  Weight: 42.64 kg

DRUGS (1)
  1. ESTRING [Suspect]
     Active Substance: ESTRADIOL
     Indication: VULVOVAGINAL DRYNESS
     Dosage: 2 MG (2MG PUT IT IN VAGINA FOR 90 DAYS)
     Route: 067
     Dates: start: 20210322

REACTIONS (5)
  - Poor quality device used [Unknown]
  - Vulvovaginal pain [Recovering/Resolving]
  - Vulvovaginal discomfort [Recovering/Resolving]
  - Wrong technique in device usage process [Unknown]
  - Device physical property issue [Unknown]

NARRATIVE: CASE EVENT DATE: 20210322
